FAERS Safety Report 19067427 (Version 1)
Quarter: 2021Q1

REPORT INFORMATION
  Report Type: Spontaneous
  Country: US (occurrence: US)
  Receive Date: 20210329
  Receipt Date: 20210329
  Transmission Date: 20210420
  Serious: No
  Sender: FDA-Public Use
  Company Number: US-TAKEDA-2021TUS017438

PATIENT
  Age: 55 Year
  Sex: Female

DRUGS (1)
  1. CUVITRU [Suspect]
     Active Substance: HUMAN IMMUNOGLOBULIN G
     Indication: PRODUCT USED FOR UNKNOWN INDICATION
     Dosage: UNK, 1/WEEK
     Route: 058
     Dates: start: 20210316

REACTIONS (2)
  - Infusion site pain [Recovering/Resolving]
  - Infusion site mass [Recovering/Resolving]

NARRATIVE: CASE EVENT DATE: 20210316
